FAERS Safety Report 8043172-2 (Version None)
Quarter: 2011Q4

REPORT INFORMATION
  Report Type: 
  Country: None (occurrence: None)
  Receive Date: 20111202
  Receipt Date: 20101008
  Transmission Date: 20120403
  Serious: Yes (Life-Threatening, Hospitalization, Other)
  Sender: FDA-Public Use
  Company Number: 2010SP054128

PATIENT
  Age: 26 Year
  Sex: Female

DRUGS (1)
  1. NUVARING [Suspect]
     Indication: CONTRACEPTION
     Dosage: 1 DF;QD;VAG
     Route: 067
     Dates: start: 20030101, end: 20100805

REACTIONS (2)
  - INCORRECT DRUG ADMINISTRATION DURATION [None]
  - PULMONARY EMBOLISM [None]
